FAERS Safety Report 10217151 (Version 2)
Quarter: 2014Q2

REPORT INFORMATION
  Report Type: Spontaneous
  Country: BR (occurrence: BR)
  Receive Date: 20140604
  Receipt Date: 20140610
  Transmission Date: 20141212
  Serious: Yes (Hospitalization)
  Sender: FDA-Public Use
  Company Number: BR-SA-2014SA068356

PATIENT
  Age: 70 Year
  Sex: Female
  Weight: 163 kg

DRUGS (2)
  1. LANTUS [Suspect]
     Indication: TYPE 2 DIABETES MELLITUS
     Dosage: STRENGTH: 3 ML CARTRIDGE
     Route: 058
     Dates: start: 2004
  2. DEVICE NOS [Concomitant]

REACTIONS (3)
  - Pulmonary embolism [Recovered/Resolved]
  - Dyspnoea [Recovered/Resolved]
  - Off label use [Unknown]
